FAERS Safety Report 16444112 (Version 1)
Quarter: 2019Q2

REPORT INFORMATION
  Report Type: Spontaneous
  Country: JP (occurrence: JP)
  Receive Date: 20190618
  Receipt Date: 20190618
  Transmission Date: 20190711
  Serious: Yes (Hospitalization)
  Sender: FDA-Public Use
  Company Number: JP-GLAXOSMITHKLINE-JP2019JPN099957

PATIENT
  Sex: Male

DRUGS (3)
  1. AVOLVE [Suspect]
     Active Substance: DUTASTERIDE
     Dosage: 0.5 MG, QD
     Route: 048
  2. AVOLVE [Suspect]
     Active Substance: DUTASTERIDE
     Dosage: 0.5 MG, QD
     Route: 048
  3. AVOLVE [Suspect]
     Active Substance: DUTASTERIDE
     Dosage: 0.5 MG, QD
     Route: 048

REACTIONS (2)
  - Hospitalisation [Unknown]
  - Product preparation issue [Unknown]
